FAERS Safety Report 6378687-6 (Version None)
Quarter: 2009Q3

REPORT INFORMATION
  Report Type: 
  Country: None (occurrence: None)
  Receive Date: 20090928
  Receipt Date: 20090924
  Transmission Date: 20100115
  Serious: Yes (Other)
  Sender: FDA-Public Use
  Company Number: AU-AMGEN-STX355071

PATIENT
  Sex: Female
  Weight: 112 kg

DRUGS (9)
  1. SENSIPAR [Suspect]
     Indication: HYPERPARATHYROIDISM SECONDARY
     Route: 048
     Dates: start: 20081105
  2. CALCITRIOL [Concomitant]
  3. RENAGEL [Concomitant]
  4. VENLAFAXINE [Concomitant]
     Dates: end: 20090601
  5. EPREX [Concomitant]
  6. LEVOTHYROXINE SODIUM [Concomitant]
  7. SERETIDE [Concomitant]
     Route: 055
  8. VENTOLIN [Concomitant]
     Route: 055
  9. GLUCOSAMINE [Concomitant]

REACTIONS (2)
  - DEPRESSION [None]
  - HYPOCALCAEMIA [None]
